FAERS Safety Report 16777479 (Version 1)
Quarter: 2019Q3

REPORT INFORMATION
  Report Type: Spontaneous
  Country: US (occurrence: US)
  Receive Date: 20190905
  Receipt Date: 20190905
  Transmission Date: 20191005
  Serious: No
  Sender: FDA-Public Use
  Company Number: US-RARE DISEASE THERAPEUTICS, INC.-2074079

PATIENT
  Age: 48 Year
  Sex: Female

DRUGS (2)
  1. ANAVIP [Suspect]
     Active Substance: PIT VIPER (CROTALINAE) IMMUNE GLOBULIN ANTIVENIN (EQUINE)
     Indication: SNAKE BITE
     Route: 042
     Dates: start: 20190820, end: 20190820
  2. TETANUS DIPHTHERIA VACCINE [Concomitant]
     Route: 065
     Dates: start: 20190820, end: 20190820

REACTIONS (5)
  - Rhinorrhoea [Recovered/Resolved]
  - Swelling of eyelid [Recovered/Resolved]
  - Sneezing [Recovered/Resolved]
  - Scratch [Recovered/Resolved]
  - Cough [Recovered/Resolved]

NARRATIVE: CASE EVENT DATE: 20190820
